FAERS Safety Report 9210317 (Version 1)
Quarter: 2013Q2

REPORT INFORMATION
  Report Type: Spontaneous
  Country: US (occurrence: US)
  Receive Date: 20130404
  Receipt Date: 20130404
  Transmission Date: 20140414
  Serious: Yes (Life-Threatening, Hospitalization, Other)
  Sender: FDA-Public Use
  Company Number: US-ELI_LILLY_AND_COMPANY-US201303009867

PATIENT
  Sex: Female

DRUGS (9)
  1. HUMALOG LISPRO [Suspect]
     Indication: DIABETES MELLITUS
     Dosage: UNK, PRN
     Dates: start: 2011
  2. COREG CR [Concomitant]
     Dosage: 40 MG, QD
  3. METFORMIN [Concomitant]
     Dosage: 500 MG, BID
  4. MAGNESIUM OXIDE [Concomitant]
     Dosage: 400 MG, QD
  5. VITAMIN D [Concomitant]
     Dosage: 50000 U, 2/M
  6. POTASSIUM CHLORIDE [Concomitant]
     Dosage: 10 MEQ, QD
  7. MONTELUKAST [Concomitant]
     Dosage: 10 MG, EACH EVENING
  8. LASIX [Concomitant]
     Dosage: 20 MG, QD
  9. LANTUS [Concomitant]
     Dosage: 70 U, EACH MORNING

REACTIONS (3)
  - Cardio-respiratory arrest [Recovered/Resolved]
  - Cardiac valve disease [Unknown]
  - Pain in extremity [Not Recovered/Not Resolved]
